FAERS Safety Report 4847921-3 (Version None)
Quarter: 2005Q4

REPORT INFORMATION
  Report Type: 
  Country: None (occurrence: None)
  Receive Date: 20051205
  Receipt Date: 20051205
  Transmission Date: 20060501
  Serious: Yes (Life-Threatening, Hospitalization)
  Sender: FDA-Public Use
  Company Number: None

PATIENT
  Age: 71 Year
  Sex: Female

DRUGS (1)
  1. RITUXIMAB [Suspect]
     Indication: LYMPHOMA
     Dosage: 10% OF 600MG DOSE = 60MG  IV DRIP
     Route: 041
     Dates: start: 20050405, end: 20050405

REACTIONS (7)
  - DYSPNOEA [None]
  - HEART RATE INCREASED [None]
  - INFUSION RELATED REACTION [None]
  - PAIN [None]
  - PYREXIA [None]
  - TACHYCARDIA [None]
  - TREMOR [None]
